FAERS Safety Report 7178293-X (Version None)
Quarter: 2010Q4

REPORT INFORMATION
  Report Type: 
  Country: None (occurrence: None)
  Receive Date: 20101220
  Receipt Date: 20101217
  Transmission Date: 20110411
  Serious: Yes (Death, Hospitalization)
  Sender: FDA-Public Use
  Company Number: US-PFIZER INC-2010105478

PATIENT
  Sex: Female
  Weight: 68 kg

DRUGS (10)
  1. AMLODIPINE BESYLATE AND ATORVASTATIN CALCIUM [Suspect]
     Indication: HYPERTENSION
     Dosage: 5 MG/40 MG, 1X/DAY
     Route: 048
     Dates: start: 20100130
  2. AMLODIPINE BESYLATE AND ATORVASTATIN CALCIUM [Suspect]
     Indication: HYPERLIPIDAEMIA
  3. ATACAND [Suspect]
     Indication: HYPERTENSION
     Dosage: 16 MG, 1X/DAY
     Route: 048
     Dates: start: 20100130
  4. METRONIDAZOLE [Concomitant]
     Dosage: UNK
     Dates: start: 20100508
  5. BENZONATATE [Concomitant]
     Dosage: UNK
     Dates: start: 20100508
  6. TEMAZEPAM [Concomitant]
     Dosage: UNK
     Dates: start: 20100508
  7. CLOPIDOGREL [Concomitant]
     Dosage: UNK
  8. LANTUS [Concomitant]
     Dosage: UNK
  9. OXYCODONE [Concomitant]
     Dosage: UNK
  10. NEURONTIN [Concomitant]
     Dosage: UNK

REACTIONS (6)
  - CARDIAC FAILURE CONGESTIVE [None]
  - CLOSTRIDIUM COLITIS [None]
  - DIARRHOEA [None]
  - NEUROPATHY PERIPHERAL [None]
  - VENTRICULAR TACHYCARDIA [None]
  - VOMITING [None]
